FAERS Safety Report 10342300 (Version 2)
Quarter: 2014Q3

REPORT INFORMATION
  Report Type: Report from Study
  Country: PL (occurrence: PL)
  Receive Date: 20140725
  Receipt Date: 20140725
  Transmission Date: 20150326
  Serious: Yes (Hospitalization)
  Sender: FDA-Public Use
  Company Number: PL-CELGENEUS-129-10004-14032133

PATIENT
  Age: 56 Year
  Sex: Female
  Weight: 117 kg

DRUGS (10)
  1. LUCETAM [Concomitant]
     Indication: DIZZINESS
     Dosage: 2400 MILLIGRAM
     Route: 048
     Dates: start: 20120822
  2. PIRAMIL [Concomitant]
     Indication: HYPERTENSION
     Dosage: 5
     Route: 048
     Dates: start: 20131002
  3. METHOTREXATE [Concomitant]
     Active Substance: METHOTREXATE
     Indication: ANKYLOSING SPONDYLITIS
     Route: 048
     Dates: start: 20120822
  4. DICLORATIO UNO [Concomitant]
     Indication: ANKYLOSING SPONDYLITIS
     Dosage: 150 MILLIGRAM
     Route: 048
     Dates: start: 20120822
  5. CC-10004 [Suspect]
     Active Substance: APREMILAST
     Indication: ANKYLOSING SPONDYLITIS
     Route: 048
     Dates: start: 20130314
  6. FOLIC ACID. [Concomitant]
     Active Substance: FOLIC ACID
     Indication: ANKYLOSING SPONDYLITIS
     Dosage: 1 TABLET
     Route: 065
  7. FOLIC ACID. [Concomitant]
     Active Substance: FOLIC ACID
     Route: 048
     Dates: start: 20120822
  8. PANTOPRAZOLE [Concomitant]
     Active Substance: PANTOPRAZOLE SODIUM
     Indication: PROPHYLAXIS
     Dosage: 40 MILLIGRAM
     Route: 048
     Dates: start: 20120822
  9. ENCORTON [Concomitant]
     Active Substance: PREDNISONE
     Indication: ANKYLOSING SPONDYLITIS
     Route: 048
     Dates: start: 20120822
  10. RISENDROS [Concomitant]
     Indication: OSTEOPOROSIS
     Dosage: 35 MILLIGRAM
     Route: 065
     Dates: start: 20120822

REACTIONS (1)
  - Bronchitis [Recovered/Resolved]

NARRATIVE: CASE EVENT DATE: 20140130
